FAERS Safety Report 7783177-X (Version None)
Quarter: 2011Q3

REPORT INFORMATION
  Report Type: 
  Country: None (occurrence: None)
  Receive Date: 20110928
  Receipt Date: 20110922
  Transmission Date: 20111222
  Serious: Yes (Hospitalization)
  Sender: FDA-Public Use
  Company Number: ES-BRISTOL-MYERS SQUIBB COMPANY-16090136

PATIENT
  Sex: Male

DRUGS (2)
  1. TRUVADA [Concomitant]
  2. REYATAZ [Suspect]

REACTIONS (1)
  - FANCONI SYNDROME [None]
